FAERS Safety Report 5764854-9 (Version None)
Quarter: 2008Q2

REPORT INFORMATION
  Report Type: 
  Country: None (occurrence: None)
  Receive Date: 20080604
  Receipt Date: 20080520
  Transmission Date: 20081010
  Serious: Yes (Hospitalization, Other)
  Sender: FDA-Public Use
  Company Number: 2008BI013565

PATIENT
  Age: 47 Year
  Sex: Female

DRUGS (1)
  1. AVONEX [Suspect]
     Indication: MULTIPLE SCLEROSIS
     Dosage: 30 UG; QW; IM
     Route: 030
     Dates: start: 20010101

REACTIONS (5)
  - GASTRIC HAEMORRHAGE [None]
  - OESOPHAGEAL RUPTURE [None]
  - PNEUMONIA ASPIRATION [None]
  - SEPSIS [None]
  - VOMITING [None]
